FAERS Safety Report 14442063 (Version 4)
Quarter: 2018Q2

REPORT INFORMATION
  Report Type: Spontaneous
  Country: CA (occurrence: CA)
  Receive Date: 20180125
  Receipt Date: 20180523
  Transmission Date: 20180711
  Serious: Yes (Hospitalization, Other)
  Sender: FDA-Public Use
  Company Number: CA-CELLTRION INC.-2018CA017485

PATIENT

DRUGS (2)
  1. INFLECTRA [Suspect]
     Active Substance: INFLIXIMAB-DYYB
     Indication: COLITIS ULCERATIVE
     Dosage: 300 MG, CYCLIC (EVERY 7 WEEKS)
     Route: 042
     Dates: start: 20171229
  2. INFLECTRA [Suspect]
     Active Substance: INFLIXIMAB-DYYB
     Dosage: 300 MG, UNK; INTRAVENOUS
     Route: 042
     Dates: start: 20180208

REACTIONS (11)
  - Blood pressure fluctuation [Unknown]
  - Abdominal pain [Recovered/Resolved]
  - Frequent bowel movements [Recovered/Resolved]
  - Condition aggravated [Unknown]
  - Drug effect incomplete [Recovered/Resolved]
  - Arthralgia [Unknown]
  - Diarrhoea [Unknown]
  - Diverticulitis [Recovered/Resolved]
  - Product use issue [Unknown]
  - Headache [Unknown]
  - Haematochezia [Recovered/Resolved]

NARRATIVE: CASE EVENT DATE: 20180114
